FAERS Safety Report 8373345-0 (Version None)
Quarter: 2012Q2

REPORT INFORMATION
  Report Type: 
  Country: None (occurrence: None)
  Receive Date: 20120521
  Receipt Date: 20120510
  Transmission Date: 20120825
  Serious: Yes (Other)
  Sender: FDA-Public Use
  Company Number: FR-ASTRAZENECA-2012SE30964

PATIENT
  Age: 74 Year
  Sex: Female
  Weight: 67 kg

DRUGS (3)
  1. CRESTOR [Suspect]
     Indication: HYPERCHOLESTEROLAEMIA
     Route: 048
     Dates: start: 20100706, end: 20110201
  2. ALDACTONE [Concomitant]
  3. VERAPAMIL [Concomitant]

REACTIONS (4)
  - ASTHENIA [None]
  - MUSCLE SPASMS [None]
  - ALOPECIA [None]
  - WEIGHT DECREASED [None]
